FAERS Safety Report 7053687-1 (Version None)
Quarter: 2010Q4

REPORT INFORMATION
  Report Type: 
  Country: None (occurrence: None)
  Receive Date: 20101020
  Receipt Date: 20101013
  Transmission Date: 20110411
  Serious: Yes (Death, Hospitalization, Congenital Anomaly)
  Sender: FDA-Public Use
  Company Number: A0683105A

PATIENT
  Sex: Male
  Weight: 1.4 kg

DRUGS (2)
  1. PAXIL [Suspect]
     Indication: PRODUCT USED FOR UNKNOWN INDICATION
  2. PRENATAL VITAMINS [Concomitant]

REACTIONS (8)
  - CONGENITAL HYDRONEPHROSIS [None]
  - DRUG EXPOSURE DURING PREGNANCY [None]
  - OLIGOHYDRAMNIOS [None]
  - PULMONARY HYPOPLASIA [None]
  - PULMONARY MALFORMATION [None]
  - RENAL APLASIA [None]
  - RENAL DYSPLASIA [None]
  - URETHRAL VALVES [None]
